FAERS Safety Report 4713680-8 (Version None)
Quarter: 2005Q3

REPORT INFORMATION
  Report Type: 
  Country: None (occurrence: None)
  Receive Date: 20050713
  Receipt Date: 20050628
  Transmission Date: 20060218
  Serious: Yes (Hospitalization)
  Sender: FDA-Public Use
  Company Number: USA050394465

PATIENT
  Age: 1 Day
  Sex: Female

DRUGS (2)
  1. ZYPREXA [Suspect]
  2. EFFEXOR [Concomitant]

REACTIONS (11)
  - CYANOSIS NEONATAL [None]
  - DRUG EXPOSURE DURING PREGNANCY [None]
  - DYSKINESIA NEONATAL [None]
  - EYELID DISORDER [None]
  - FEEDING DISORDER NEONATAL [None]
  - FLOPPY INFANT [None]
  - HEAD LAG [None]
  - HYPOTONIA NEONATAL [None]
  - NEONATAL APNOEIC ATTACK [None]
  - NEONATAL DISORDER [None]
  - VASCULAR SKIN DISORDER [None]
